FAERS Safety Report 10481786 (Version 29)
Quarter: 2016Q4

REPORT INFORMATION
  Report Type: Spontaneous
  Country: AU (occurrence: AU)
  Receive Date: 20140929
  Receipt Date: 20161202
  Transmission Date: 20170206
  Serious: Yes (Hospitalization, Disabling, Other)
  Sender: FDA-Public Use
  Company Number: AU-PFIZER INC-2014265207

PATIENT
  Age: 64 Year
  Sex: Male
  Weight: 77 kg

DRUGS (18)
  1. CRESTOR [Concomitant]
     Active Substance: ROSUVASTATIN CALCIUM
     Dosage: 40 MG, UNK
  2. LANTUS SOLOSTAR [Concomitant]
     Active Substance: INSULIN GLARGINE
     Dosage: 8 UNITS, UNK
  3. RIVAROXABAN [Concomitant]
     Active Substance: RIVAROXABAN
     Indication: MYOCARDIAL INFARCTION
     Dosage: 20 MG, UNK
  4. SINEMET [Concomitant]
     Active Substance: CARBIDOPA\LEVODOPA
     Dosage: 25 MG, 4X/DAY (7AM, 12PM, 4PM AND 8PM)
  5. RASAGILINE MESILATE [Concomitant]
     Active Substance: RASAGILINE MESYLATE
     Dosage: 0.5 MG (1/2 OF 1MG)
  6. ISORDIL [Concomitant]
     Active Substance: ISOSORBIDE DINITRATE
     Dosage: 5 MG, UNK
  7. LOSEC [Concomitant]
     Active Substance: OMEPRAZOLE
     Dosage: 20 MG, 1X/DAY (7PM)
  8. NITROLINGUAL [Concomitant]
     Active Substance: NITROGLYCERIN
     Dosage: 200 MG, UNK
  9. CHAMPIX [Suspect]
     Active Substance: VARENICLINE TARTRATE
     Indication: SMOKING CESSATION THERAPY
     Dosage: 0.5 MG, DAILY  FOR 11 DAYS
     Dates: start: 201409, end: 201409
  10. DIABEX [Concomitant]
     Active Substance: METFORMIN HYDROCHLORIDE
     Dosage: 2000 MG, 1X/DAY (500MG FOUR AT NIGHT)
  11. ZOLOFT [Concomitant]
     Active Substance: SERTRALINE HYDROCHLORIDE
     Dosage: 100 MG, 1X/DAY IN THE MORNING
  12. MAREVAN [Concomitant]
     Active Substance: WARFARIN SODIUM
     Indication: ANTICOAGULANT THERAPY
     Dosage: 5 MG, 1X/DAY
  13. CHAMPIX [Suspect]
     Active Substance: VARENICLINE TARTRATE
     Dosage: 1 MG, DAILY FOR 14 DAYS
     Dates: start: 201409, end: 20140923
  14. RIVAROXABAN [Concomitant]
     Active Substance: RIVAROXABAN
     Indication: ANGINA PECTORIS
  15. SIFROL ER [Concomitant]
     Active Substance: PRAMIPEXOLE
     Dosage: 375 MG, UNK
     Dates: start: 20140909
  16. METOPROLOL. [Concomitant]
     Active Substance: METOPROLOL
     Indication: TACHYCARDIA
     Dosage: 50 MG, 2X/DAY
  17. SOLPRIN [Concomitant]
     Active Substance: ASPIRIN
     Dosage: 150 MG, UNK
  18. KINSON [Concomitant]
     Active Substance: CARBIDOPA\LEVODOPA
     Dosage: 100 MG, 4X/DAY(7AM, 12PM, 4PM AND 8PM)

REACTIONS (56)
  - Injury [Not Recovered/Not Resolved]
  - Thermal burn [Recovered/Resolved]
  - Mood swings [Not Recovered/Not Resolved]
  - Weight increased [Recovered/Resolved]
  - Arrhythmia [Not Recovered/Not Resolved]
  - Chest pain [Not Recovered/Not Resolved]
  - Angina pectoris [Not Recovered/Not Resolved]
  - Temperature intolerance [Not Recovered/Not Resolved]
  - Oedema peripheral [Recovered/Resolved]
  - Aggression [Not Recovered/Not Resolved]
  - Asthenia [Unknown]
  - Balance disorder [Unknown]
  - Atrioventricular block [Not Recovered/Not Resolved]
  - Hypotension [Not Recovered/Not Resolved]
  - Musculoskeletal chest pain [Not Recovered/Not Resolved]
  - Thrombosis [Not Recovered/Not Resolved]
  - Herpes zoster [Recovered/Resolved]
  - Blindness [Not Recovered/Not Resolved]
  - Transient ischaemic attack [Not Recovered/Not Resolved]
  - Pain in extremity [Not Recovered/Not Resolved]
  - Food intolerance [Recovered/Resolved]
  - Anger [Not Recovered/Not Resolved]
  - Blood glucose increased [Not Recovered/Not Resolved]
  - Condition aggravated [Not Recovered/Not Resolved]
  - Depression [Not Recovered/Not Resolved]
  - Fear [Not Recovered/Not Resolved]
  - Cerebrovascular accident [Not Recovered/Not Resolved]
  - Anxiety [Not Recovered/Not Resolved]
  - Malaise [Not Recovered/Not Resolved]
  - Syncope [Not Recovered/Not Resolved]
  - Blood pressure increased [Recovered/Resolved]
  - Abnormal dreams [Unknown]
  - Fatigue [Unknown]
  - Pain [Not Recovered/Not Resolved]
  - Anaemia [Recovered/Resolved]
  - Gangrene [Not Recovered/Not Resolved]
  - Type 2 diabetes mellitus [Unknown]
  - Activities of daily living impaired [Not Recovered/Not Resolved]
  - Headache [Unknown]
  - Atrial flutter [Not Recovered/Not Resolved]
  - Tooth socket haemorrhage [Recovered/Resolved]
  - Insomnia [Not Recovered/Not Resolved]
  - Lethargy [Unknown]
  - Parkinson^s disease [Not Recovered/Not Resolved]
  - Back pain [Not Recovered/Not Resolved]
  - Dizziness [Not Recovered/Not Resolved]
  - Cellulitis [Recovered/Resolved]
  - General physical health deterioration [Unknown]
  - Condition aggravated [Unknown]
  - Arthralgia [Not Recovered/Not Resolved]
  - Blood insulin increased [Unknown]
  - Gait disturbance [Unknown]
  - Heart rate increased [Not Recovered/Not Resolved]
  - Haemorrhage [Recovered/Resolved]
  - Infection [Not Recovered/Not Resolved]
  - Suicidal ideation [Not Recovered/Not Resolved]

NARRATIVE: CASE EVENT DATE: 2014
